FAERS Safety Report 8070312-1 (Version None)
Quarter: 2011Q4

REPORT INFORMATION
  Report Type: 
  Country: None (occurrence: None)
  Receive Date: 20111221
  Receipt Date: 20110819
  Transmission Date: 20120403
  Serious: Yes (Other)
  Sender: FDA-Public Use
  Company Number: PHEH2011US02118

PATIENT
  Age: 55 Year
  Sex: Female
  Weight: 172 kg

DRUGS (8)
  1. TYLENOL (PARACETAMOL) TABLET [Concomitant]
  2. ATENOLOL [Concomitant]
  3. ATIVAN [Concomitant]
  4. OSCAL 500-D (CALCIUM, COLECALCIFEROL) TABLET [Concomitant]
  5. VITAMIN D (ERGOCALCIFEROL) CAPSULE [Concomitant]
  6. TACROLIMUS [Concomitant]
  7. EXJADE [Suspect]
     Dosage: 3 DF, (1500 MG) EVERY NIGHT AT BED TIME,ORAL
     Route: 048
     Dates: end: 20110813
  8. FOLIC ACID [Concomitant]

REACTIONS (4)
  - EYELID OEDEMA [None]
  - LIP SWELLING [None]
  - OEDEMA MOUTH [None]
  - RASH GENERALISED [None]
